FAERS Safety Report 8054627-9 (Version None)
Quarter: 2012Q1

REPORT INFORMATION
  Report Type: 
  Country: None (occurrence: None)
  Receive Date: 20120119
  Receipt Date: 20120109
  Transmission Date: 20120608
  Serious: Yes (Hospitalization, Other)
  Sender: FDA-Public Use
  Company Number: DE-AMGEN-DEUSP2011062887

PATIENT
  Age: 68 Year
  Sex: Female
  Weight: 86 kg

DRUGS (1)
  1. ENBREL [Suspect]
     Indication: RHEUMATOID ARTHRITIS
     Dosage: 50 MG, WEEKLY
     Dates: start: 20090611, end: 20111122

REACTIONS (2)
  - INTERVERTEBRAL DISC PROTRUSION [None]
  - ARTHRALGIA [None]
